FAERS Safety Report 10188949 (Version 2)
Quarter: 2014Q2

REPORT INFORMATION
  Report Type: Spontaneous
  Country: IT (occurrence: IT)
  Receive Date: 20140522
  Receipt Date: 20140522
  Transmission Date: 20141212
  Serious: Yes (Hospitalization)
  Sender: FDA-Public Use
  Company Number: IT-009507513-1403ITA011312

PATIENT
  Age: 56 Year
  Sex: Male

DRUGS (3)
  1. VICTRELIS [Suspect]
     Indication: CHRONIC HEPATITIS C
     Dosage: 2400 MG DAILY
     Route: 048
  2. PEGINTRON [Concomitant]
     Indication: CHRONIC HEPATITIS C
     Dosage: 150 MCG
     Route: 058
  3. COPEGUS [Concomitant]
     Indication: CHRONIC HEPATITIS C
     Dosage: 1200MG
     Route: 048

REACTIONS (4)
  - Urinary tract infection [Unknown]
  - Pyrexia [Unknown]
  - Blood uric acid increased [Recovered/Resolved]
  - Blood uric acid increased [Unknown]
